FAERS Safety Report 14629420 (Version 1)
Quarter: 2018Q1

REPORT INFORMATION
  Report Type: Spontaneous
  Country: US (occurrence: US)
  Receive Date: 20180312
  Receipt Date: 20180312
  Transmission Date: 20180509
  Serious: Yes (Life-Threatening, Hospitalization, Disabling)
  Sender: FDA-Public Use
  Company Number: None

PATIENT
  Age: 45 Year
  Sex: Male
  Weight: 94.5 kg

DRUGS (1)
  1. LEMTRADA [Suspect]
     Active Substance: ALEMTUZUMAB
     Indication: MULTIPLE SCLEROSIS
     Dosage: ?          QUANTITY:5 INJECTION(S);?
     Route: 042
     Dates: start: 20170501, end: 20170505

REACTIONS (12)
  - Influenza [None]
  - Muscle spasticity [None]
  - Hyperhidrosis [None]
  - Sinusitis [None]
  - Lymphadenopathy [None]
  - Cerebral fungal infection [None]
  - Chills [None]
  - Tremor [None]
  - Migraine [None]
  - Coccidioidomycosis [None]
  - Nasopharyngitis [None]
  - Bronchitis [None]

NARRATIVE: CASE EVENT DATE: 20170912
